FAERS Safety Report 9264346 (Version 7)
Quarter: 2015Q2

REPORT INFORMATION
  Report Type: Spontaneous
  Country: US (occurrence: US)
  Receive Date: 20130430
  Receipt Date: 20150527
  Transmission Date: 20150821
  Serious: No
  Sender: FDA-Public Use
  Company Number: US-009507513-1304USA016971

PATIENT
  Sex: Male
  Weight: 91.61 kg

DRUGS (5)
  1. PROPECIA [Suspect]
     Active Substance: FINASTERIDE
     Dosage: 1 MG, QD
     Route: 048
     Dates: start: 200501, end: 200603
  2. EFFEXOR XR [Suspect]
     Active Substance: VENLAFAXINE HYDROCHLORIDE
     Dosage: 150 MG, QD
     Dates: end: 201101
  3. PROPECIA [Suspect]
     Active Substance: FINASTERIDE
     Dosage: 1 MG, QD
     Route: 048
     Dates: start: 201012, end: 201110
  4. PROPECIA [Suspect]
     Active Substance: FINASTERIDE
     Indication: ANDROGENETIC ALOPECIA
     Dosage: 1 MG, QD
     Route: 048
     Dates: start: 200411, end: 201110
  5. PROPECIA [Suspect]
     Active Substance: FINASTERIDE
     Dosage: 1 MG, QD
     Route: 048
     Dates: start: 200711, end: 200811

REACTIONS (12)
  - Testicular pain [Not Recovered/Not Resolved]
  - Erectile dysfunction [Not Recovered/Not Resolved]
  - Generalised anxiety disorder [Not Recovered/Not Resolved]
  - Adenotonsillectomy [Unknown]
  - Cognitive disorder [Not Recovered/Not Resolved]
  - Benign prostatic hyperplasia [Unknown]
  - Attention deficit/hyperactivity disorder [Unknown]
  - Pelvic pain [Not Recovered/Not Resolved]
  - Arthritis [Unknown]
  - Sexual dysfunction [Not Recovered/Not Resolved]
  - Prostatic pain [Unknown]
  - Major depression [Unknown]

NARRATIVE: CASE EVENT DATE: 2005
